FAERS Safety Report 18564315 (Version 1)
Quarter: 2020Q4

REPORT INFORMATION
  Report Type: Spontaneous
  Country: US (occurrence: US)
  Receive Date: 20201130
  Receipt Date: 20201130
  Transmission Date: 20210114
  Serious: No
  Sender: FDA-Public Use
  Company Number: None

PATIENT
  Age: 64 Year
  Sex: Male
  Weight: 69.12 kg

DRUGS (10)
  1. PROCHLORPERAZINE MALEATE. [Concomitant]
     Active Substance: PROCHLORPERAZINE MALEATE
  2. ACYCLOVIR. [Concomitant]
     Active Substance: ACYCLOVIR
  3. ZARXIO [Suspect]
     Active Substance: FILGRASTIM-SNDZ
     Indication: PLASMA CELL MYELOMA
     Route: 058
     Dates: start: 20201013, end: 20201130
  4. SENNA LAXATIVE [Concomitant]
     Active Substance: SENNOSIDES
  5. METHADONE HCL [Concomitant]
     Active Substance: METHADONE HYDROCHLORIDE
  6. DILAUDID [Concomitant]
     Active Substance: HYDROMORPHONE HYDROCHLORIDE
  7. VITAMIN D [Concomitant]
     Active Substance: VITAMIN D NOS
  8. FAMOTIDINE. [Concomitant]
     Active Substance: FAMOTIDINE
  9. LEXAPRO [Concomitant]
     Active Substance: ESCITALOPRAM OXALATE
  10. ZYPREXA [Concomitant]
     Active Substance: OLANZAPINE

REACTIONS (1)
  - Hospice care [None]

NARRATIVE: CASE EVENT DATE: 20201130
